FAERS Safety Report 5601491-0 (Version None)
Quarter: 2008Q1

REPORT INFORMATION
  Report Type: 
  Country: None (occurrence: None)
  Receive Date: 20080124
  Receipt Date: 20080114
  Transmission Date: 20080703
  Serious: Yes (Other)
  Sender: FDA-Public Use
  Company Number: US-ABBOTT-08P-163-0433650-00

PATIENT
  Sex: Female

DRUGS (1)
  1. TRICOR [Suspect]
     Indication: DRUG USE FOR UNKNOWN INDICATION

REACTIONS (4)
  - ARRHYTHMIA [None]
  - CORONARY ARTERY DISEASE [None]
  - MITRAL VALVE PROLAPSE [None]
  - PERIPHERAL VASCULAR DISORDER [None]
